FAERS Safety Report 7368877-8 (Version None)
Quarter: 2011Q1

REPORT INFORMATION
  Report Type: 
  Country: None (occurrence: None)
  Receive Date: 20110323
  Receipt Date: 20110318
  Transmission Date: 20110831
  Serious: Yes (Other)
  Sender: FDA-Public Use
  Company Number: US-PFIZER INC-2011045907

PATIENT
  Sex: Female
  Weight: 77.09 kg

DRUGS (3)
  1. HYDROCHLOROTHIAZIDE [Interacting]
     Indication: BLOOD PRESSURE ABNORMAL
     Dosage: UNK
  2. ALPRAZOLAM [Suspect]
     Indication: RELAXATION THERAPY
     Dosage: 0.5 MG, UNK
     Dates: start: 20110101
  3. ALPRAZOLAM [Interacting]
     Dosage: 0.25 MG, 4X/DAY
     Dates: end: 20110301

REACTIONS (11)
  - BONE DENSITY DECREASED [None]
  - HEART RATE INCREASED [None]
  - DRUG HYPERSENSITIVITY [None]
  - LIMB DISCOMFORT [None]
  - BLOOD PRESSURE INCREASED [None]
  - DYSPNOEA [None]
  - FEELING ABNORMAL [None]
  - PSYCHOMOTOR HYPERACTIVITY [None]
  - CLUMSINESS [None]
  - DRUG INTOLERANCE [None]
  - ABDOMINAL DISTENSION [None]
